FAERS Safety Report 6255661-1 (Version None)
Quarter: 2009Q3

REPORT INFORMATION
  Report Type: 
  Country: None (occurrence: None)
  Receive Date: 20090702
  Receipt Date: 20090624
  Transmission Date: 20100115
  Serious: Yes (Death, Other)
  Sender: FDA-Public Use
  Company Number: FR-BAXTER-2009BH010745

PATIENT
  Age: 67 Year
  Sex: Female

DRUGS (14)
  1. ENDOXAN BAXTER [Suspect]
     Indication: BREAST CANCER METASTATIC
     Route: 065
     Dates: start: 20081022, end: 20081126
  2. OLICLINOMEL [Suspect]
     Indication: PARENTERAL NUTRITION
     Route: 065
     Dates: start: 20081209, end: 20081213
  3. METHYLPREDNISOLONE [Suspect]
     Indication: DRUG USE FOR UNKNOWN INDICATION
     Route: 065
     Dates: start: 20081205
  4. FLUOROURACIL [Suspect]
     Indication: BREAST CANCER METASTATIC
     Dates: start: 20081022
  5. METHOTREXATE [Suspect]
     Indication: BREAST CANCER METASTATIC
     Route: 065
     Dates: start: 20081022
  6. TAXOTERE [Concomitant]
     Indication: BREAST CANCER METASTATIC
     Route: 065
     Dates: start: 20060801
  7. AVASTIN [Concomitant]
     Indication: BREAST CANCER METASTATIC
     Route: 065
     Dates: start: 20060801
  8. DIAMICRON [Concomitant]
     Indication: DIABETES MELLITUS
     Route: 065
     Dates: start: 20061218, end: 20070419
  9. FLUOROURACIL [Concomitant]
     Indication: BREAST CANCER METASTATIC
     Route: 065
     Dates: start: 20070501, end: 20070901
  10. CISPLATIN [Concomitant]
     Indication: BREAST CANCER METASTATIC
     Route: 065
     Dates: start: 20080201
  11. CARBOPLATIN [Concomitant]
     Indication: BREAST CANCER METASTATIC
     Route: 065
     Dates: start: 20080501
  12. GEMCITABINE [Concomitant]
     Indication: BREAST CANCER METASTATIC
     Route: 065
     Dates: start: 20080501
  13. TAXOL [Concomitant]
     Indication: BREAST CANCER METASTATIC
     Route: 065
     Dates: start: 20080701, end: 20080901
  14. FLUOROURACIL [Concomitant]
     Route: 065
     Dates: start: 20080201

REACTIONS (5)
  - BONE MARROW FAILURE [None]
  - CONDITION AGGRAVATED [None]
  - EYE PAIN [None]
  - HYPERGLYCAEMIA [None]
  - MUCOSAL INFLAMMATION [None]
